FAERS Safety Report 5266978-1 (Version None)
Quarter: 2007Q1

REPORT INFORMATION
  Report Type: 
  Country: None (occurrence: None)
  Receive Date: 20070316
  Receipt Date: 20070309
  Transmission Date: 20070707
  Serious: Yes (Hospitalization)
  Sender: FDA-Public Use
  Company Number: FR-BRISTOL-MYERS SQUIBB COMPANY-13614292

PATIENT
  Age: 59 Year
  Sex: Female

DRUGS (2)
  1. XELODA [Suspect]
     Indication: BREAST CANCER
     Route: 048
     Dates: start: 20060601, end: 20060706
  2. CLINUTREN [Concomitant]
     Dates: start: 20060629

REACTIONS (2)
  - INTESTINAL OBSTRUCTION [None]
  - NEUTROPENIA [None]
